FAERS Safety Report 24885854 (Version 5)
Quarter: 2025Q3

REPORT INFORMATION
  Report Type: Spontaneous
  Country: US (occurrence: US)
  Receive Date: 20250125
  Receipt Date: 20250705
  Transmission Date: 20251021
  Serious: Yes (Hospitalization, Other)
  Sender: UNITED THERAPEUTICS
  Company Number: US-UNITED THERAPEUTICS-UNT-2025-001168

PATIENT
  Sex: Male

DRUGS (13)
  1. TYVASO [Suspect]
     Active Substance: TREPROSTINIL
     Indication: Pulmonary arterial hypertension
     Dosage: 54 ?G, QID
     Dates: start: 2024
  2. TYVASO [Suspect]
     Active Substance: TREPROSTINIL
  3. TYVASO [Suspect]
     Active Substance: TREPROSTINIL
     Dosage: 54 ?G, QID
  4. TYVASO [Suspect]
     Active Substance: TREPROSTINIL
  5. TORSEMIDE [Suspect]
     Active Substance: TORSEMIDE
     Indication: Dyspnoea
  6. OFEV [Concomitant]
     Active Substance: NINTEDANIB
     Indication: Interstitial lung disease
     Dosage: 100 MG, Q12H
     Dates: start: 202405
  7. OFEV [Concomitant]
     Active Substance: NINTEDANIB
     Indication: Idiopathic pulmonary fibrosis
  8. OXYGEN [Concomitant]
     Active Substance: OXYGEN
     Indication: Pneumonia
  9. OXYGEN [Concomitant]
     Active Substance: OXYGEN
     Indication: Dyspnoea
  10. OXYGEN [Concomitant]
     Active Substance: OXYGEN
     Indication: Bendopnoea
  11. OXYGEN [Concomitant]
     Active Substance: OXYGEN
     Indication: Pulmonary fibrosis
  12. OXYGEN [Concomitant]
     Active Substance: OXYGEN
     Indication: Pulmonary arterial hypertension
  13. OXYGEN [Concomitant]
     Active Substance: OXYGEN
     Indication: Dyspnoea exertional

REACTIONS (16)
  - Pulmonary arterial hypertension [Unknown]
  - Pulmonary fibrosis [Unknown]
  - Pneumonia [Unknown]
  - Bendopnoea [Unknown]
  - Dyspnoea exertional [Unknown]
  - Cough [Unknown]
  - Diarrhoea [Not Recovered/Not Resolved]
  - Bronchitis [Unknown]
  - Dysphonia [Unknown]
  - Dyspnoea [Recovering/Resolving]
  - General physical health deterioration [Unknown]
  - Fatigue [Unknown]
  - Weight fluctuation [Unknown]
  - Peripheral swelling [Unknown]
  - Therapy partial responder [Unknown]
  - Unevaluable device issue [Unknown]

NARRATIVE: CASE EVENT DATE: 20240101
